FAERS Safety Report 16356768 (Version 1)
Quarter: 2019Q2

REPORT INFORMATION
  Report Type: Spontaneous
  Country: JP (occurrence: JP)
  Receive Date: 20190527
  Receipt Date: 20190527
  Transmission Date: 20190711
  Serious: Yes (Other)
  Sender: FDA-Public Use
  Company Number: JP-TEVA-2019-JP-1055543

PATIENT
  Age: 37 Year
  Sex: Female
  Weight: 42.5 kg

DRUGS (11)
  1. NEOSTIGMINE. [Suspect]
     Active Substance: NEOSTIGMINE METHYLSULFATE
     Route: 065
  2. MAGNESIUM SULFATE. [Interacting]
     Active Substance: MAGNESIUM SULFATE
     Indication: PRE-ECLAMPSIA
     Dosage: LOADING INFUSION AT 4G/20MIN (LOADING DOSE OF 94MG/KG)
     Route: 050
  3. FENTANYL. [Suspect]
     Active Substance: FENTANYL
     Indication: MAINTENANCE OF ANAESTHESIA
     Route: 065
  4. SUGAMMADEX [Suspect]
     Active Substance: SUGAMMADEX
     Route: 065
  5. NIFEDIPINE. [Suspect]
     Active Substance: NIFEDIPINE
     Indication: HYPERTENSION
     Route: 048
  6. PROPOFOL. [Suspect]
     Active Substance: PROPOFOL
     Route: 065
  7. ROCURONIUM [Suspect]
     Active Substance: ROCURONIUM BROMIDE
     Route: 065
  8. SEVOFLURANE. [Suspect]
     Active Substance: SEVOFLURANE
     Indication: MAINTENANCE OF ANAESTHESIA
     Dosage: 1-1.5%
     Route: 065
  9. MAGNESIUM SULFATE. [Interacting]
     Active Substance: MAGNESIUM SULFATE
     Indication: PRE-ECLAMPSIA
     Dosage: MAINTENANCE INFUSION AT 1G/HR
     Route: 050
  10. REMIFENTANIL [Suspect]
     Active Substance: REMIFENTANIL
     Indication: MAINTENANCE OF ANAESTHESIA
     Dosage: 0.1-0.2MCG/KG/MIN
     Route: 065
  11. ATROPINE. [Suspect]
     Active Substance: ATROPINE
     Route: 065

REACTIONS (3)
  - Maternal exposure during pregnancy [Unknown]
  - Neuromuscular block prolonged [Recovered/Resolved]
  - Drug interaction [Recovered/Resolved]
